FAERS Safety Report 8790468 (Version 1)
Quarter: 2012Q4

REPORT INFORMATION
  Report Type: Spontaneous
  Country: DK (occurrence: None)
  Receive Date: 20120906
  Receipt Date: 20120906
  Transmission Date: 20130627
  Serious: Yes (Other)
  Sender: FDA-Public Use
  Company Number: 2012MA010717

PATIENT
  Age: 35 Year
  Sex: Female

DRUGS (4)
  1. FEVERALL [Suspect]
     Indication: PAIN
     Route: 042
     Dates: start: 20120810, end: 20120810
  2. FENTANYL [Concomitant]
  3. PROPOFOL [Concomitant]
  4. DEXAMETHASONE [Concomitant]

REACTIONS (1)
  - Bronchospasm [None]
